FAERS Safety Report 17225331 (Version 1)
Quarter: 2020Q1

REPORT INFORMATION
  Report Type: Spontaneous
  Country: GB (occurrence: GB)
  Receive Date: 20200102
  Receipt Date: 20200102
  Transmission Date: 20200409
  Serious: Yes (Other)
  Sender: FDA-Public Use
  Company Number: US-ALLERGAN-1953111US

PATIENT
  Sex: Male
  Weight: 68 kg

DRUGS (2)
  1. TEICOPLANIN [Suspect]
     Active Substance: TEICOPLANIN
     Indication: OSTEOMYELITIS
     Dosage: 740 MG, ALTERNATE DAY 10 DF
     Route: 042
     Dates: start: 20191030, end: 20191118
  2. CEFTAZIDIME;AVIBACTAM - BP [Suspect]
     Active Substance: AVIBACTAM SODIUM\CEFTAZIDIME
     Indication: OSTEOMYELITIS
     Dosage: 3.75 MG, QD
     Route: 042
     Dates: start: 20191115, end: 20191117

REACTIONS (3)
  - White blood cell count increased [Unknown]
  - Rash [Unknown]
  - Drug reaction with eosinophilia and systemic symptoms [Recovering/Resolving]

NARRATIVE: CASE EVENT DATE: 20191118
